FAERS Safety Report 5169359-4 (Version None)
Quarter: 2006Q4

REPORT INFORMATION
  Report Type: 
  Country: None (occurrence: None)
  Receive Date: 20061211
  Receipt Date: 20061130
  Transmission Date: 20070319
  Serious: Yes (Hospitalization, Disabling, Other)
  Sender: FDA-Public Use
  Company Number: GB-BRISTOL-MYERS SQUIBB COMPANY-13604889

PATIENT
  Age: 70 Year
  Sex: Male

DRUGS (5)
  1. CYCLOPHOSPHAMIDE [Suspect]
     Route: 048
     Dates: start: 20060901, end: 20060901
  2. FLUDARABINE [Suspect]
     Route: 048
     Dates: start: 20060901, end: 20060901
  3. ACYCLOVIR [Concomitant]
     Route: 048
     Dates: start: 20060830, end: 20060901
  4. ALLOPURINOL [Concomitant]
     Route: 048
     Dates: start: 20060830, end: 20060901
  5. PREDNISOLONE [Concomitant]

REACTIONS (1)
  - HAEMOLYTIC ANAEMIA [None]
